FAERS Safety Report 5048979-1 (Version None)
Quarter: 2006Q3

REPORT INFORMATION
  Report Type: 
  Country: None (occurrence: None)
  Receive Date: 20060712
  Receipt Date: 20051101
  Transmission Date: 20061208
  Serious: Yes (Hospitalization)
  Sender: FDA-Public Use
  Company Number: US-GLAXOSMITHKLINE-A0580507A

PATIENT
  Age: 61 Year
  Sex: Female

DRUGS (10)
  1. IMITREX [Suspect]
     Indication: MIGRAINE
     Dosage: 100MG AS REQUIRED
     Route: 048
  2. ATENOLOL [Concomitant]
  3. PREMARIN [Concomitant]
  4. NEXIUM [Concomitant]
  5. SYNTHROID [Concomitant]
  6. ALLEGRA [Concomitant]
  7. FLONASE [Concomitant]
  8. POTASSIUM [Concomitant]
  9. AMBIEN [Concomitant]
  10. MOBIC [Concomitant]

REACTIONS (1)
  - CEREBROVASCULAR ACCIDENT [None]
